FAERS Safety Report 13406320 (Version 1)
Quarter: 2017Q2

REPORT INFORMATION
  Report Type: Report from Study
  Country: None (occurrence: AR)
  Receive Date: 20170405
  Receipt Date: 20170405
  Transmission Date: 20170830
  Serious: Yes (Hospitalization, Other)
  Sender: FDA-Public Use
  Company Number: AR-ABBVIE-17P-007-1931876-00

PATIENT
  Age: 63 Year
  Sex: Male

DRUGS (1)
  1. ZEMPLAR [Suspect]
     Active Substance: PARICALCITOL
     Indication: HYPERPARATHYROIDISM SECONDARY
     Route: 042
     Dates: start: 20131202

REACTIONS (2)
  - Internal haemorrhage [Recovering/Resolving]
  - Venous injury [Unknown]

NARRATIVE: CASE EVENT DATE: 20170322
